FAERS Safety Report 23911381 (Version 1)
Quarter: 2024Q2

REPORT INFORMATION
  Report Type: Spontaneous
  Country: FR (occurrence: FR)
  Receive Date: 20240528
  Receipt Date: 20240528
  Transmission Date: 20240716
  Serious: Yes (Other)
  Sender: FDA-Public Use
  Company Number: None

PATIENT
  Age: 70 Year
  Sex: Female

DRUGS (3)
  1. OXOMEMAZINE HYDROCHLORIDE [Suspect]
     Active Substance: OXOMEMAZINE HYDROCHLORIDE
     Indication: Influenza like illness
     Dosage: 40 ML (4X10ML/J)
     Route: 048
     Dates: start: 20240115, end: 20240120
  2. ACETAMINOPHEN [Suspect]
     Active Substance: ACETAMINOPHEN
     Indication: Influenza like illness
     Dosage: 3 G (3X1G/J)
     Route: 048
     Dates: start: 20240115, end: 20240125
  3. BETAMETHASONE VALERATE [Concomitant]
     Active Substance: BETAMETHASONE VALERATE
     Indication: Product used for unknown indication
     Route: 065

REACTIONS (2)
  - Eosinophilia [Recovered/Resolved]
  - Rash maculo-papular [Recovered/Resolved]

NARRATIVE: CASE EVENT DATE: 20240120
